FAERS Safety Report 20215368 (Version 3)
Quarter: 2023Q2

REPORT INFORMATION
  Report Type: Other
  Country: US (occurrence: None)
  Receive Date: 20211222
  Receipt Date: 20230505
  Transmission Date: 20230722
  Serious: Yes (Hospitalization, Other)
  Sender: FDA-Public Use
  Company Number: US-ROCHE-2979403

PATIENT
  Age: 60 Year
  Sex: Female
  Weight: 104.42 kg

DRUGS (20)
  1. OCREVUS [Suspect]
     Active Substance: OCRELIZUMAB
     Indication: Primary progressive multiple sclerosis
     Dosage: 300 MG ON DAY 1 AND DAY 15
     Route: 042
     Dates: start: 20181228
  2. OCREVUS [Suspect]
     Active Substance: OCRELIZUMAB
     Indication: Relapsing-remitting multiple sclerosis
  3. ELIQUIS [Concomitant]
     Active Substance: APIXABAN
  4. AMANTADINE [Concomitant]
     Active Substance: AMANTADINE
  5. AMLODIPINE [Concomitant]
     Active Substance: AMLODIPINE BESYLATE
  6. AMOXICILLIN [Concomitant]
     Active Substance: AMOXICILLIN
  7. BUPROPION [Concomitant]
     Active Substance: BUPROPION
  8. CITALOPRAM [Concomitant]
     Active Substance: CITALOPRAM HYDROBROMIDE
  9. DIAZEPAM [Concomitant]
     Active Substance: DIAZEPAM
     Route: 048
  10. FAMOTIDINE [Concomitant]
     Active Substance: FAMOTIDINE
  11. GABAPENTIN [Concomitant]
     Active Substance: GABAPENTIN
  12. ACETAMINOPHEN\HYDROCODONE [Concomitant]
     Active Substance: ACETAMINOPHEN\HYDROCODONE
  13. LISINOPRIL AND HYDROCHLOROTHIAZIDE [Concomitant]
     Active Substance: HYDROCHLOROTHIAZIDE\LISINOPRIL
  14. MELOXICAM [Concomitant]
     Active Substance: MELOXICAM
  15. METHOCARBAMOL [Concomitant]
     Active Substance: METHOCARBAMOL
  16. NAPROXEN [Concomitant]
     Active Substance: NAPROXEN
     Route: 048
  17. OXYCODONE [Concomitant]
     Active Substance: OXYCODONE
  18. POLYETHYLENE GLYCOL [Concomitant]
     Active Substance: POLYETHYLENE GLYCOL
  19. ROPINIROLE [Concomitant]
     Active Substance: ROPINIROLE
  20. TIZANIDINE [Concomitant]
     Active Substance: TIZANIDINE

REACTIONS (16)
  - Fall [Unknown]
  - Head injury [Unknown]
  - Deep vein thrombosis [Unknown]
  - Intervertebral disc degeneration [Recovered/Resolved]
  - Transient ischaemic attack [Not Recovered/Not Resolved]
  - Thrombosis [Unknown]
  - Lumbar vertebral fracture [Recovered/Resolved]
  - COVID-19 [Unknown]
  - Wound dehiscence [Unknown]
  - Weight increased [Not Recovered/Not Resolved]
  - Pain in extremity [Not Recovered/Not Resolved]
  - Meniscus injury [Recovered/Resolved]
  - Hypoaesthesia [Recovering/Resolving]
  - Nail discolouration [Recovered/Resolved]
  - Limb injury [Not Recovered/Not Resolved]
  - Skin abrasion [Not Recovered/Not Resolved]

NARRATIVE: CASE EVENT DATE: 20200101
